FAERS Safety Report 15090332 (Version 1)
Quarter: 2018Q2

REPORT INFORMATION
  Report Type: Spontaneous
  Country: US (occurrence: US)
  Receive Date: 20180608
  Receipt Date: 20180608
  Transmission Date: 20180711
  Serious: Yes (Hospitalization)
  Sender: FDA-Public Use
  Company Number: None

PATIENT
  Age: 72 Year
  Sex: Male
  Weight: 72.3 kg

DRUGS (1)
  1. NUVIGIL [Suspect]
     Active Substance: ARMODAFINIL
     Dates: end: 20180207

REACTIONS (11)
  - Muscle twitching [None]
  - Vasogenic cerebral oedema [None]
  - Asthenia [None]
  - Myoclonus [None]
  - Muscle rigidity [None]
  - Nuclear magnetic resonance imaging brain abnormal [None]
  - Cerebral small vessel ischaemic disease [None]
  - Brain oedema [None]
  - Malignant neoplasm progression [None]
  - Aphasia [None]
  - Seizure [None]

NARRATIVE: CASE EVENT DATE: 20180225
